FAERS Safety Report 16914860 (Version 1)
Quarter: 2019Q4

REPORT INFORMATION
  Report Type: Spontaneous
  Country: US (occurrence: US)
  Receive Date: 20191014
  Receipt Date: 20191014
  Transmission Date: 20200122
  Serious: No
  Sender: FDA-Public Use
  Company Number: US-GLAXOSMITHKLINE-US2019180832

PATIENT
  Sex: Female

DRUGS (1)
  1. ZEJULA [Suspect]
     Active Substance: NIRAPARIB
     Indication: PRODUCT USED FOR UNKNOWN INDICATION
     Dosage: 100 MG, QD
     Route: 048

REACTIONS (6)
  - Headache [Recovered/Resolved]
  - Carbohydrate antigen 125 increased [Recovering/Resolving]
  - Fatigue [Recovered/Resolved]
  - Fibromyalgia [Recovering/Resolving]
  - White blood cell count decreased [Recovered/Resolved]
  - Nausea [Recovered/Resolved]
